FAERS Safety Report 8495385-3 (Version None)
Quarter: 2012Q2

REPORT INFORMATION
  Report Type: 
  Country: None (occurrence: None)
  Receive Date: 20120403
  Receipt Date: 20110722
  Transmission Date: 20120825
  Serious: Yes (Other)
  Sender: FDA-Public Use
  Company Number: 1-0711-76

PATIENT
  Sex: Male

DRUGS (2)
  1. FLUOCINOLONE ACETONIDE [Suspect]
     Indication: ECZEMA
     Dosage: TOPICAL
     Route: 061
  2. TRIAMCINOLONE [Concomitant]

REACTIONS (1)
  - URTICARIA [None]
